FAERS Safety Report 11158502 (Version 2)
Quarter: 2015Q3

REPORT INFORMATION
  Report Type: Spontaneous
  Country: US (occurrence: US)
  Receive Date: 20150603
  Receipt Date: 20150826
  Transmission Date: 20151125
  Serious: Yes (Hospitalization, Other)
  Sender: FDA-Public Use
  Company Number: US-PFIZER INC-2015181903

PATIENT
  Age: 48 Year
  Sex: Female

DRUGS (7)
  1. BYSTOLIC [Concomitant]
     Active Substance: NEBIVOLOL HYDROCHLORIDE
     Dosage: 20 MG, 1X/DAY
     Dates: start: 2011
  2. FLECAINIDE [Concomitant]
     Active Substance: FLECAINIDE
     Dosage: 100 MG, 2X/DAY
     Dates: start: 2011
  3. XARELTO [Concomitant]
     Active Substance: RIVAROXABAN
     Dosage: 20 MG, 1X/DAY
     Dates: start: 201305
  4. PLAVIX [Concomitant]
     Active Substance: CLOPIDOGREL BISULFATE
     Dosage: 75 MG, 1X/DAY
     Dates: start: 201505
  5. PRAVASTATIN [Concomitant]
     Active Substance: PRAVASTATIN\PRAVASTATIN SODIUM
     Dosage: 40 MG, 1X/DAY
     Dates: start: 2012
  6. PROCARDIA XL [Suspect]
     Active Substance: NIFEDIPINE
     Indication: BLOOD PRESSURE MEASUREMENT
     Dosage: 30 MG, DAILY
     Route: 048
     Dates: start: 2011
  7. CLONIDINE. [Concomitant]
     Active Substance: CLONIDINE
     Indication: HYPERTENSION
     Dosage: 0.1 MG, UNK
     Dates: start: 2011

REACTIONS (1)
  - Cerebrovascular accident [Unknown]

NARRATIVE: CASE EVENT DATE: 201305
